FAERS Safety Report 20994716 (Version 1)
Quarter: 2022Q2

REPORT INFORMATION
  Report Type: Spontaneous
  Country: US (occurrence: US)
  Receive Date: 20220622
  Receipt Date: 20220622
  Transmission Date: 20220721
  Serious: No
  Sender: FDA-Public Use
  Company Number: US-BRISTOL-MYERS SQUIBB COMPANY-2022-048619

PATIENT
  Age: 65 Year
  Sex: Female
  Weight: 79.38 kg

DRUGS (11)
  1. OPDIVO [Suspect]
     Active Substance: NIVOLUMAB
     Indication: Neoplasm malignant
     Dosage: FREQ : EVERY 2 WEEKS?STRENGTH: 240 MG VIALS ?DRUG DOSE/ FREQUENCY:   240MG EVERY 14 DAYS
     Dates: start: 2022
  2. AMOXICILLIN [Concomitant]
     Active Substance: AMOXICILLIN
  3. CLONIDINE [Concomitant]
     Active Substance: CLONIDINE
  4. LEVOTHYROXINE [Concomitant]
     Active Substance: LEVOTHYROXINE
  5. LOSARTAN [Concomitant]
     Active Substance: LOSARTAN
  6. METOPROLOL [Concomitant]
     Active Substance: METOPROLOL
  7. LOVASTATIN [Concomitant]
     Active Substance: LOVASTATIN
  8. OMEPRAZOLE [Concomitant]
     Active Substance: OMEPRAZOLE
  9. PREDNISONE [Concomitant]
     Active Substance: PREDNISONE
  10. SERTRALINE [Concomitant]
     Active Substance: SERTRALINE HYDROCHLORIDE
  11. TRAMADOL [Concomitant]
     Active Substance: TRAMADOL

REACTIONS (1)
  - Intentional product use issue [Unknown]
